FAERS Safety Report 9886035 (Version 2)
Quarter: 2014Q1

REPORT INFORMATION
  Report Type: Spontaneous
  Country: CZ (occurrence: CZ)
  Receive Date: 20140210
  Receipt Date: 20140227
  Transmission Date: 20141002
  Serious: Yes (Hospitalization, Other)
  Sender: FDA-Public Use
  Company Number: CZ-AMGEN-CZESP2014008148

PATIENT
  Age: 79 Year
  Sex: Female

DRUGS (4)
  1. PROLIA [Suspect]
     Indication: PRODUCT USED FOR UNKNOWN INDICATION
     Dosage: 60 MG, Q6MO
     Route: 065
     Dates: start: 201203
  2. SORTIS [Concomitant]
     Indication: HYPERCHOLESTEROLAEMIA
     Dosage: 20 MG, QD
     Route: 048
  3. ALPHA D3 [Concomitant]
     Indication: OSTEOPOROSIS
     Dosage: 1 MUG, QD
     Route: 048
  4. CALTRATE                           /00944201/ [Concomitant]
     Indication: OSTEOPOROSIS
     Dosage: UNK UNK, QD

REACTIONS (1)
  - Osteonecrosis of jaw [Unknown]
